FAERS Safety Report 9687554 (Version 2)
Quarter: 2013Q4

REPORT INFORMATION
  Report Type: Spontaneous
  Country: DE (occurrence: DE)
  Receive Date: 20131114
  Receipt Date: 20131217
  Transmission Date: 20140711
  Serious: Yes (Other)
  Sender: FDA-Public Use
  Company Number: DE-AMGEN-DEUSP2013079094

PATIENT
  Age: 48 Year
  Sex: Female

DRUGS (8)
  1. NEULASTA [Suspect]
     Indication: NON-HODGKIN^S LYMPHOMA
     Dosage: 6 MG, REPEATING D15
     Route: 058
     Dates: start: 20131025
  2. NEULASTA [Suspect]
     Indication: PROPHYLAXIS
  3. RITUXIMAB [Concomitant]
     Indication: NON-HODGKIN^S LYMPHOMA
     Dosage: UNK, DAY 14
     Route: 042
     Dates: start: 20131014
  4. CYCLOPHOSPHAMIDE [Concomitant]
     Indication: NON-HODGKIN^S LYMPHOMA
     Dosage: UNK, DAY 14
     Route: 042
     Dates: start: 20131014
  5. DOXORUBICIN [Concomitant]
     Indication: NON-HODGKIN^S LYMPHOMA
     Dosage: UNK, DAY 14
     Route: 042
     Dates: start: 20131014
  6. ONCOVIN [Concomitant]
     Indication: NON-HODGKIN^S LYMPHOMA
     Dosage: UNK, DAY 14
     Route: 042
     Dates: start: 20131014
  7. ETOPOSIDE [Concomitant]
     Indication: NON-HODGKIN^S LYMPHOMA
     Dosage: UNK, DAY 14
     Route: 042
     Dates: start: 20131014
  8. PREDNISOLONE [Concomitant]
     Indication: NON-HODGKIN^S LYMPHOMA
     Dosage: UNK, DAY 14
     Route: 042
     Dates: start: 20131014

REACTIONS (2)
  - Blast cells present [Recovered/Resolved]
  - Leukocytosis [Recovered/Resolved]
